FAERS Safety Report 9585875 (Version 1)
Quarter: 2013Q3

REPORT INFORMATION
  Report Type: Spontaneous
  Country: IL (occurrence: None)
  Receive Date: 20130926
  Receipt Date: 20130926
  Transmission Date: 20140515
  Serious: Yes (Hospitalization)
  Sender: FDA-Public Use
  Company Number: 2012-01194

PATIENT
  Age: 30 Year
  Sex: Male

DRUGS (3)
  1. VALPROIC ACID [Suspect]
     Indication: CONVULSION
     Dosage: 1000MG (500 MG UNKNOWN)
  2. SIMVASTATIN [Concomitant]
  3. ATENOLOL [Concomitant]

REACTIONS (1)
  - Pleural effusion [None]
